FAERS Safety Report 4646337-2 (Version None)
Quarter: 2005Q2

REPORT INFORMATION
  Report Type: 
  Country: None (occurrence: None)
  Receive Date: 20050427
  Receipt Date: 20041206
  Transmission Date: 20051028
  Serious: Yes (Hospitalization)
  Sender: FDA-Public Use
  Company Number: PHBS2004JP16456

PATIENT
  Sex: Female

DRUGS (3)
  1. ANTIDEPRESSANTS [Suspect]
     Dosage: ^LOTS^
     Dates: start: 20041205, end: 20041205
  2. GLEEVEC [Suspect]
     Indication: CHRONIC MYELOID LEUKAEMIA
     Route: 048
  3. GLEEVEC [Suspect]
     Dosage: 1400 MG, ONCE/SINGLE
     Route: 048
     Dates: start: 20041205, end: 20041205

REACTIONS (3)
  - DEPRESSED LEVEL OF CONSCIOUSNESS [None]
  - INTENTIONAL MISUSE [None]
  - SUICIDE ATTEMPT [None]
